FAERS Safety Report 8165541-2 (Version None)
Quarter: 2012Q1

REPORT INFORMATION
  Report Type: 
  Country: None (occurrence: None)
  Receive Date: 20120227
  Receipt Date: 20120220
  Transmission Date: 20120608
  Serious: Yes (Life-Threatening)
  Sender: FDA-Public Use
  Company Number: KR-GENZYME-THYM-1003114

PATIENT
  Sex: Male
  Weight: 68 kg

DRUGS (4)
  1. THYMOGLOBULIN [Suspect]
     Indication: BONE MARROW CONDITIONING REGIMEN
     Dosage: 3 MG/KG, QD
     Route: 042
     Dates: start: 20120128, end: 20120128
  2. FLUDARABINE PHOSPHATE [Concomitant]
     Indication: BONE MARROW CONDITIONING REGIMEN
     Dosage: 30 MG/KG, QD
     Route: 065
     Dates: start: 20120125, end: 20120130
  3. MICAFUNGIN [Concomitant]
     Indication: PROPHYLAXIS
     Dosage: 50 MG, QD
     Route: 065
     Dates: start: 20120124, end: 20120204
  4. PROSTAGLANDIN E1 [Concomitant]
     Indication: PROPHYLAXIS
     Dosage: 10 MG/KG, QD
     Route: 065
     Dates: start: 20120125, end: 20120207

REACTIONS (2)
  - ASPARTATE AMINOTRANSFERASE INCREASED [None]
  - ALANINE AMINOTRANSFERASE INCREASED [None]
